FAERS Safety Report 17846110 (Version 1)
Quarter: 2020Q2

REPORT INFORMATION
  Report Type: Spontaneous
  Country: US (occurrence: US)
  Receive Date: 20200531
  Receipt Date: 20200531
  Transmission Date: 20200714
  Serious: Yes (Disabling)
  Sender: FDA-Public Use
  Company Number: None

PATIENT
  Age: 35 Year
  Sex: Female
  Weight: 60.75 kg

DRUGS (3)
  1. GARLIC. [Concomitant]
     Active Substance: GARLIC
  2. VITAMIN C [Concomitant]
     Active Substance: ASCORBIC ACID
  3. PROCTOFOAM HC [Suspect]
     Active Substance: HYDROCORTISONE ACETATE\PRAMOXINE HYDROCHLORIDE
     Indication: HAEMORRHOIDS
     Dosage: ?          QUANTITY:1 SUPPOSITORY(IES);?
     Route: 054
     Dates: start: 20200123, end: 20200201

REACTIONS (1)
  - Anal fissure [None]

NARRATIVE: CASE EVENT DATE: 20200210
